FAERS Safety Report 12731763 (Version 1)
Quarter: 2016Q3

REPORT INFORMATION
  Report Type: Spontaneous
  Country: US (occurrence: US)
  Receive Date: 20160909
  Receipt Date: 20160909
  Transmission Date: 20161109
  Serious: Yes (Other)
  Sender: FDA-Public Use
  Company Number: None

PATIENT
  Age: 24 Year
  Sex: Male
  Weight: 90.45 kg

DRUGS (13)
  1. HEPARIN [Concomitant]
     Active Substance: HEPARIN SODIUM
  2. LACTOBACILLUS [Concomitant]
     Active Substance: LACTOBACILLUS ACIDOPHILUS
  3. PANTOPRAZOLE [Concomitant]
     Active Substance: PANTOPRAZOLE SODIUM
  4. ONDANSETRON [Concomitant]
     Active Substance: ONDANSETRON
  5. HYDROCODONE BITARTRATE AND ACETAMINOPHEN [Concomitant]
     Active Substance: ACETAMINOPHEN\HYDROCODONE BITARTRATE
  6. CIPROFLOXACIN. [Concomitant]
     Active Substance: CIPROFLOXACIN
  7. VANCOMYCIN [Suspect]
     Active Substance: VANCOMYCIN
     Indication: ANTIBIOTIC THERAPY
     Dosage: OTHER
     Route: 042
     Dates: start: 20160831, end: 20160906
  8. HYDRMORPHONE [Concomitant]
     Active Substance: HYDROMORPHONE
  9. ZOSYN [Concomitant]
     Active Substance: PIPERACILLIN SODIUM\TAZOBACTAM SODIUM
  10. APAP [Concomitant]
     Active Substance: ACETAMINOPHEN
  11. MORPHINE SULFATE. [Concomitant]
     Active Substance: MORPHINE SULFATE
  12. POTASSIUM CL [Concomitant]
     Active Substance: POTASSIUM CHLORIDE
  13. VANCOMYCIN [Suspect]
     Active Substance: VANCOMYCIN
     Indication: ANTIBIOTIC THERAPY
     Dosage: OTHER INTRAVENOUS (NOT OTHERWISE SPECIFIED)
     Route: 042
     Dates: start: 20160831, end: 20160906

REACTIONS (1)
  - Blood creatinine increased [None]

NARRATIVE: CASE EVENT DATE: 20160904
